FAERS Safety Report 8271508-6 (Version None)
Quarter: 2012Q2

REPORT INFORMATION
  Report Type: 
  Country: None (occurrence: None)
  Receive Date: 20120410
  Receipt Date: 20120402
  Transmission Date: 20120825
  Serious: Yes (Other)
  Sender: FDA-Public Use
  Company Number: GB-ASTRAZENECA-2012SE21728

PATIENT
  Sex: Male

DRUGS (2)
  1. TAXOTERE [Suspect]
     Indication: PROSTATE CANCER METASTATIC
  2. GOSERELIN [Suspect]
     Indication: PROSTATE CANCER METASTATIC
     Route: 058

REACTIONS (1)
  - NEUTROPENIA [None]
